FAERS Safety Report 5514204-8 (Version None)
Quarter: 2007Q4

REPORT INFORMATION
  Report Type: 
  Country: None (occurrence: None)
  Receive Date: 20071106
  Receipt Date: 20070504
  Transmission Date: 20080405
  Serious: Yes (Hospitalization)
  Sender: FDA-Public Use
  Company Number: US200705001498

PATIENT
  Age: 25 Year
  Sex: Female

DRUGS (1)
  1. PROZAC [Suspect]
     Indication: DEPRESSION
     Dosage: 40 MG, DAILY (1/D), ORAL ; 20 MG
     Route: 048
     Dates: start: 20010101

REACTIONS (3)
  - ABDOMINAL PAIN [None]
  - AUTOIMMUNE DISORDER [None]
  - PANCREATITIS ACUTE [None]
